FAERS Safety Report 8159247-3 (Version None)
Quarter: 2012Q1

REPORT INFORMATION
  Report Type: 
  Country: None (occurrence: None)
  Receive Date: 20120103
  Receipt Date: 20111015
  Transmission Date: 20120608
  Serious: No
  Sender: FDA-Public Use
  Company Number: AE-2011-002335

PATIENT
  Age: 64 Year
  Sex: Male
  Weight: 81.6475 kg

DRUGS (6)
  1. RIBAVIRIN [Concomitant]
  2. PRILOSEC [Concomitant]
  3. PROZAC [Concomitant]
  4. INCIVEK [Suspect]
     Dosage: 2250 MG (750 MG, 1 IN 8 HR)
     Dates: start: 20110923
  5. PROPRANOLOL [Concomitant]
  6. PEGASYS [Concomitant]

REACTIONS (5)
  - DIZZINESS [None]
  - NAUSEA [None]
  - FATIGUE [None]
  - PHOTOPHOBIA [None]
  - MOOD ALTERED [None]
